FAERS Safety Report 14447853 (Version 2)
Quarter: 2018Q1

REPORT INFORMATION
  Report Type: Spontaneous
  Country: US (occurrence: US)
  Receive Date: 20180126
  Receipt Date: 20180131
  Transmission Date: 20180509
  Serious: No
  Sender: FDA-Public Use
  Company Number: US-009507513-1801USA007461

PATIENT
  Sex: Female

DRUGS (1)
  1. TRUSOPT [Suspect]
     Active Substance: DORZOLAMIDE HYDROCHLORIDE
     Dosage: 1 DROP IN EACH EYE THREE TIMES DAILY
     Route: 047

REACTIONS (3)
  - Product availability issue [Unknown]
  - Drug dose omission [Unknown]
  - No adverse event [Unknown]
